FAERS Safety Report 15606211 (Version 1)
Quarter: 2018Q4

REPORT INFORMATION
  Report Type: Spontaneous
  Country: US (occurrence: US)
  Receive Date: 20181112
  Receipt Date: 20181112
  Transmission Date: 20190205
  Serious: Yes (Hospitalization, Other)
  Sender: FDA-Public Use
  Company Number: US-AUROBINDO-AUR-APL-2018-053375

PATIENT
  Age: 65 Year
  Sex: Female

DRUGS (3)
  1. PREDNISONE. [Suspect]
     Active Substance: PREDNISONE
     Indication: PROPHYLAXIS AGAINST TRANSPLANT REJECTION
     Dosage: 5 MILLIGRAM, DAILY
     Route: 065
  2. LEFLUNOMIDE. [Suspect]
     Active Substance: LEFLUNOMIDE
     Indication: PROPHYLAXIS AGAINST TRANSPLANT REJECTION
     Dosage: 10 MILLIGRAM, DAILY
     Route: 065
  3. TACROLIMUS. [Suspect]
     Active Substance: TACROLIMUS
     Indication: PROPHYLAXIS AGAINST TRANSPLANT REJECTION
     Dosage: 1 MILLIGRAM, DAILY
     Route: 065

REACTIONS (9)
  - Vision blurred [Recovered/Resolved]
  - Vitreous opacities [Recovered/Resolved]
  - Hypoxia [Recovered/Resolved]
  - Empyema [Recovered/Resolved]
  - Pulmonary mass [Recovered/Resolved]
  - Pleural effusion [Recovered/Resolved]
  - Endophthalmitis [Recovered/Resolved]
  - Retinal disorder [Recovered/Resolved]
  - Respiratory tract infection [Recovered/Resolved]
